FAERS Safety Report 19797894 (Version 1)
Quarter: 2021Q3

REPORT INFORMATION
  Report Type: Spontaneous
  Country: US (occurrence: US)
  Receive Date: 20210906
  Receipt Date: 20210906
  Transmission Date: 20211014
  Serious: Yes (Other)
  Sender: FDA-Public Use
  Company Number: None

PATIENT
  Age: 54 Year
  Sex: Female
  Weight: 63 kg

DRUGS (3)
  1. OLANZAPINE. [Suspect]
     Active Substance: OLANZAPINE
     Indication: MENOPAUSE
     Dosage: QUANTITY:1 30;?
     Route: 048
     Dates: start: 20190808, end: 20200202
  2. PAIN MEDICATION OTC [Concomitant]
  3. ZOLOFT [Concomitant]
     Active Substance: SERTRALINE HYDROCHLORIDE

REACTIONS (6)
  - Oropharyngeal pain [None]
  - Feeling abnormal [None]
  - Skin disorder [None]
  - Breast pain [None]
  - Urine flow decreased [None]
  - Gait disturbance [None]

NARRATIVE: CASE EVENT DATE: 20200201
